FAERS Safety Report 11121364 (Version 1)
Quarter: 2015Q2

REPORT INFORMATION
  Report Type: Report from Study
  Country: CA (occurrence: CA)
  Receive Date: 20150519
  Receipt Date: 20150519
  Transmission Date: 20150821
  Serious: Yes (Other)
  Sender: FDA-Public Use
  Company Number: PHHY2015CA056385

PATIENT
  Sex: Male

DRUGS (2)
  1. SANDOSTATIN LAR DEPOT [Suspect]
     Active Substance: OCTREOTIDE ACETATE
     Indication: GASTROINTESTINAL ANGIODYSPLASIA
     Dosage: 20 MG EVERY 4 WEEKS
     Route: 030
     Dates: start: 20150309
  2. SANDOSTATIN LAR DEPOT [Suspect]
     Active Substance: OCTREOTIDE ACETATE
     Indication: ANAEMIA

REACTIONS (5)
  - Abdominal distension [Recovering/Resolving]
  - Diverticulitis [Recovering/Resolving]
  - Off label use [Unknown]
  - Haemoglobin decreased [Recovering/Resolving]
  - Constipation [Recovering/Resolving]
